FAERS Safety Report 15703879 (Version 3)
Quarter: 2019Q1

REPORT INFORMATION
  Report Type: Spontaneous
  Country: US (occurrence: US)
  Receive Date: 20181210
  Receipt Date: 20190122
  Transmission Date: 20190417
  Serious: Yes (Other)
  Sender: FDA-Public Use
  Company Number: US-GLAXOSMITHKLINE-US2018GSK219108

PATIENT
  Age: 45 Year
  Sex: Male
  Weight: 76.64 kg

DRUGS (4)
  1. NUCALA [Suspect]
     Active Substance: MEPOLIZUMAB
     Indication: NASAL POLYPS
  2. NUCALA [Suspect]
     Active Substance: MEPOLIZUMAB
     Indication: EOSINOPHIL COUNT INCREASED
  3. NUCALA [Suspect]
     Active Substance: MEPOLIZUMAB
     Indication: SINUSITIS
  4. NUCALA [Suspect]
     Active Substance: MEPOLIZUMAB
     Indication: ASTHMA
     Dosage: 100 MG, UNK
     Route: 058
     Dates: start: 20180220, end: 20180220

REACTIONS (8)
  - Swelling [Recovered/Resolved]
  - Transient ischaemic attack [Unknown]
  - Dry skin [Unknown]
  - Eosinophil count abnormal [Unknown]
  - Thyroid cancer [Unknown]
  - Exfoliative rash [Recovered/Resolved]
  - Neck mass [Unknown]
  - Ultrasound Doppler [Unknown]

NARRATIVE: CASE EVENT DATE: 20180223
